FAERS Safety Report 17654565 (Version 2)
Quarter: 2020Q2

REPORT INFORMATION
  Report Type: Report from Study
  Country: US (occurrence: US)
  Receive Date: 20200410
  Receipt Date: 20200430
  Transmission Date: 20200713
  Serious: Yes (Other)
  Sender: FDA-Public Use
  Company Number: US-REGENERON PHARMACEUTICALS, INC.-2020-28273

PATIENT

DRUGS (2)
  1. EYLEA [Suspect]
     Active Substance: AFLIBERCEPT
     Indication: DIABETIC RETINAL OEDEMA
  2. EYLEA [Suspect]
     Active Substance: AFLIBERCEPT
     Indication: DIABETIC RETINOPATHY
     Dosage: 2 MG, EVERY 4 WEEKS
     Route: 031
     Dates: start: 20200313, end: 20200313

REACTIONS (3)
  - Ocular hyperaemia [Unknown]
  - Eye haemorrhage [Unknown]
  - Eye injury [Unknown]

NARRATIVE: CASE EVENT DATE: 20200413
